FAERS Safety Report 24383277 (Version 1)
Quarter: 2024Q4

REPORT INFORMATION
  Report Type: Spontaneous
  Country: US (occurrence: US)
  Receive Date: 20241001
  Receipt Date: 20241001
  Transmission Date: 20250114
  Serious: No
  Sender: CATALYST PHARMA
  Company Number: US-CATALYST PHARMACEUTICALS-US-CATA-24-00595

PATIENT
  Sex: Male
  Weight: 33.56 kg

DRUGS (2)
  1. AGAMREE [Suspect]
     Active Substance: VAMOROLONE
     Indication: Duchenne muscular dystrophy
     Dosage: 3 ML ONCE DAILY
     Route: 048
     Dates: start: 20240207
  2. FLINTSTONES MULTIVITAMINS [Concomitant]
     Indication: Hypovitaminosis
     Dosage: UNK, QD
     Route: 065

REACTIONS (1)
  - Excessive eye blinking [Not Recovered/Not Resolved]

NARRATIVE: CASE EVENT DATE: 20240101
